FAERS Safety Report 23866583 (Version 1)
Quarter: 2024Q2

REPORT INFORMATION
  Report Type: Spontaneous
  Country: CA (occurrence: CA)
  Receive Date: 20240517
  Receipt Date: 20240517
  Transmission Date: 20240716
  Serious: Yes (Hospitalization, Other)
  Sender: FDA-Public Use
  Company Number: CA-HIKMA PHARMACEUTICALS USA INC.-CA-H14001-24-04030

PATIENT
  Age: 16 Year
  Sex: Male

DRUGS (4)
  1. CALCITONIN [Suspect]
     Active Substance: CALCITONIN
     Indication: Hypercalcaemia
     Dosage: UNKNOWN
     Route: 058
  2. CREATINE MONOHYDRATE [Suspect]
     Active Substance: CREATINE MONOHYDRATE
     Indication: Supplementation therapy
     Dosage: UNKNOWN
     Route: 065
  3. FUROSEMIDE [Suspect]
     Active Substance: FUROSEMIDE
     Indication: Hypercalcaemia
     Dosage: UNKNOWN
     Route: 065
  4. CHOLECALCIFEROL [Suspect]
     Active Substance: CHOLECALCIFEROL
     Indication: Supplementation therapy
     Dosage: UNKNOWN
     Route: 065

REACTIONS (11)
  - Acute kidney injury [Recovered/Resolved]
  - Electrocardiogram QT prolonged [Recovered/Resolved]
  - Electrocardiogram T wave inversion [Recovered/Resolved]
  - Headache [Recovered/Resolved]
  - Hypercalcaemia [Recovered/Resolved]
  - Hypertension [Recovered/Resolved]
  - Hypervitaminosis D [Recovered/Resolved]
  - Nausea [Recovered/Resolved]
  - Sinus bradycardia [Recovered/Resolved]
  - Therapeutic product ineffective [Recovered/Resolved]
  - Product contamination [Recovered/Resolved]
